FAERS Safety Report 20430648 (Version 1)
Quarter: 2022Q1

REPORT INFORMATION
  Report Type: Report from Study
  Country: FR (occurrence: FR)
  Receive Date: 20220204
  Receipt Date: 20220204
  Transmission Date: 20220423
  Serious: Yes (Other)
  Sender: FDA-Public Use
  Company Number: FR-SERVIER-S21004535

PATIENT

DRUGS (11)
  1. PEGASPARGASE [Suspect]
     Active Substance: PEGASPARGASE
     Indication: Acute lymphocytic leukaemia
     Dosage: 2125 IU, D15
     Route: 042
     Dates: start: 20210112
  2. TN UNSPECIFIED [Concomitant]
     Indication: Acute lymphocytic leukaemia
     Dosage: 850 MG, D1
     Route: 042
     Dates: start: 20210129
  3. TN UNSPECIFIED [Concomitant]
     Indication: Acute lymphocytic leukaemia
     Dosage: 1.3 MG, D15, D22
     Route: 042
     Dates: start: 20210212
  4. TN UNSPECIFIED [Concomitant]
     Indication: Acute lymphocytic leukaemia
     Dosage: 256 MG, D3 TO D6, D10 TO D13
     Route: 042
     Dates: start: 20210201
  5. TN UNSPECIFIED [Concomitant]
     Dosage: 15 MG, D3, D16
     Route: 037
     Dates: start: 20210201
  6. TN UNSPECIFIED [Concomitant]
     Indication: Acute lymphocytic leukaemia
     Dosage: 12 MG, D3, D16
     Route: 037
     Dates: start: 20210201
  7. TN UNSPECIFIED [Concomitant]
     Indication: Acute lymphocytic leukaemia
     Dosage: 30 MG, D3, D16
     Route: 037
     Dates: start: 20210201
  8. TN UNSPECIFIED [Concomitant]
     Indication: Acute lymphocytic leukaemia
     Dosage: 50 MG, D1, D14
     Route: 048
     Dates: start: 20210201
  9. TN UNSPECIFIED [Concomitant]
     Indication: Prophylaxis
     Dosage: 600 MG, 3X A WEEK
     Route: 048
  10. TN UNSPECIFED [Concomitant]
     Indication: Nausea
     Dosage: 1 DF, BID
     Route: 048
  11. TN UNSPECIFIED [Concomitant]
     Indication: Nausea
     Dosage: 1 DF, TID
     Route: 048

REACTIONS (2)
  - Lipase increased [Recovered/Resolved]
  - Febrile bone marrow aplasia [Recovered/Resolved]

NARRATIVE: CASE EVENT DATE: 20210223
